FAERS Safety Report 22104004 (Version 1)
Quarter: 2023Q1

REPORT INFORMATION
  Report Type: Spontaneous
  Country: US (occurrence: US)
  Receive Date: 20230316
  Receipt Date: 20230316
  Transmission Date: 20230417
  Serious: No
  Sender: FDA-Public Use
  Company Number: US-BIOVITRUM-2023-US-01515

PATIENT
  Age: 82 Year
  Sex: Male

DRUGS (3)
  1. DOPTELET [Suspect]
     Active Substance: AVATROMBOPAG MALEATE
     Indication: Product used for unknown indication
  2. DOPTELET [Suspect]
     Active Substance: AVATROMBOPAG MALEATE
  3. DOPTELET [Suspect]
     Active Substance: AVATROMBOPAG MALEATE

REACTIONS (1)
  - Full blood count increased [Unknown]
